FAERS Safety Report 23918104 (Version 1)
Quarter: 2024Q2

REPORT INFORMATION
  Report Type: Spontaneous
  Country: ES (occurrence: ES)
  Receive Date: 20240530
  Receipt Date: 20240530
  Transmission Date: 20240716
  Serious: Yes (Death, Life-Threatening, Hospitalization)
  Sender: FDA-Public Use
  Company Number: ES-JNJFOC-20240574991

PATIENT
  Age: 80 Year
  Sex: Female

DRUGS (1)
  1. IMBRUVICA [Suspect]
     Active Substance: IBRUTINIB
     Indication: Chronic lymphocytic leukaemia
     Route: 048
     Dates: start: 20171219

REACTIONS (6)
  - Death [Fatal]
  - Fall [Fatal]
  - Hyponatraemia [Fatal]
  - Haematoma [Fatal]
  - Cognitive disorder [Fatal]
  - Stress fracture [Fatal]

NARRATIVE: CASE EVENT DATE: 20180226
